FAERS Safety Report 8528805-6 (Version None)
Quarter: 2012Q3

REPORT INFORMATION
  Report Type: 
  Country: None (occurrence: None)
  Receive Date: 20120723
  Receipt Date: 20120712
  Transmission Date: 20120928
  Serious: Yes (Hospitalization, Other)
  Sender: FDA-Public Use
  Company Number: JP-SHIRE-ALL1-2012-03477

PATIENT

DRUGS (1)
  1. FOSRENOL [Suspect]
     Indication: HYPERPHOSPHATAEMIA
     Dosage: 1500 MG, 1X/DAY:QD
     Route: 048

REACTIONS (4)
  - PROCTITIS [None]
  - WRONG TECHNIQUE IN DRUG USAGE PROCESS [None]
  - MYOCARDIAL INFARCTION [None]
  - ASPIRATION [None]
